FAERS Safety Report 10891172 (Version 2)
Quarter: 2015Q1

REPORT INFORMATION
  Report Type: Spontaneous
  Country: GB (occurrence: GB)
  Receive Date: 20150305
  Receipt Date: 20150313
  Transmission Date: 20150721
  Serious: Yes (Hospitalization, Other)
  Sender: FDA-Public Use
  Company Number: GB-SA-2015SA025764

PATIENT
  Age: 54 Year
  Sex: Female

DRUGS (1)
  1. LANTUS [Suspect]
     Active Substance: INSULIN GLARGINE
     Indication: TYPE 2 DIABETES MELLITUS
     Dosage: DOSE: 180 (UNITS UNSPECIFIED)
     Route: 065

REACTIONS (11)
  - Headache [Unknown]
  - Weight increased [Unknown]
  - Alopecia [Unknown]
  - Memory impairment [Unknown]
  - Muscle spasms [Unknown]
  - Peripheral swelling [Unknown]
  - Constipation [Unknown]
  - Diarrhoea [Unknown]
  - Erythema [Unknown]
  - Increased appetite [Unknown]
  - Neuropathic arthropathy [Unknown]
